FAERS Safety Report 6403548-3 (Version None)
Quarter: 2009Q4

REPORT INFORMATION
  Report Type: 
  Country: None (occurrence: None)
  Receive Date: 20091016
  Receipt Date: 20091007
  Transmission Date: 20100525
  Serious: Yes (Death)
  Sender: FDA-Public Use
  Company Number: JP-AVENTIS-200912773JP

PATIENT
  Age: 68 Year
  Sex: Female
  Weight: 33.6 kg

DRUGS (3)
  1. TAXOTERE [Suspect]
     Route: 041
     Dates: start: 20090915, end: 20090915
  2. TS-1 [Concomitant]
  3. CISPLATIN [Concomitant]

REACTIONS (1)
  - DEATH [None]
